FAERS Safety Report 10540125 (Version 1)
Quarter: 2014Q4

REPORT INFORMATION
  Report Type: Spontaneous
  Country: US (occurrence: None)
  Receive Date: 20141023
  Receipt Date: 20141023
  Transmission Date: 20150529
  Serious: No
  Sender: FDA-Public Use
  Company Number: None

PATIENT
  Age: 64 Year
  Sex: Male
  Weight: 109 kg

DRUGS (16)
  1. DEXTROSE GEL [Concomitant]
  2. DEXTROSE INJECTION [Concomitant]
  3. ASPIRIN. [Concomitant]
     Active Substance: ASPIRIN
  4. DEXTROSE/DOPAMINE [Suspect]
     Active Substance: DEXTROSE\DOPAMINE
     Indication: CARDIOVASCULAR DISORDER
     Dosage: 250 MCG OTHER IV
     Route: 042
     Dates: start: 20141010, end: 20141010
  5. BISACODYL. [Concomitant]
     Active Substance: BISACODYL
  6. DEXTROSE/DOPAMINE [Suspect]
     Active Substance: DEXTROSE\DOPAMINE
     Indication: SURGERY
     Dosage: 250 MCG OTHER IV
     Route: 042
     Dates: start: 20141010, end: 20141010
  7. LORAZEPAM INJECTION [Concomitant]
  8. DOCUSATE [Concomitant]
     Active Substance: DOCUSATE
  9. OXYCODONE [Concomitant]
     Active Substance: OXYCODONE
  10. SODIUM CHLORIDE FLUSH [Concomitant]
  11. RANITIDINE [Concomitant]
     Active Substance: RANITIDINE\RANITIDINE HYDROCHLORIDE
  12. VENLAFAXINE [Concomitant]
     Active Substance: VENLAFAXINE HYDROCHLORIDE
  13. ONDASETRON [Concomitant]
  14. OMEPRAZOLE. [Concomitant]
     Active Substance: OMEPRAZOLE
  15. HYDROMORPHONE INJECTION [Concomitant]
  16. GLUCAGON INJECTION [Concomitant]

REACTIONS (4)
  - Hypotension [None]
  - Blood pressure systolic decreased [None]
  - Oxygen saturation decreased [None]
  - Shock [None]

NARRATIVE: CASE EVENT DATE: 20141010
